FAERS Safety Report 19585782 (Version 1)
Quarter: 2021Q3

REPORT INFORMATION
  Report Type: Report from Study
  Country: US (occurrence: US)
  Receive Date: 20210720
  Receipt Date: 20210720
  Transmission Date: 20211014
  Serious: Yes (Other)
  Sender: FDA-Public Use
  Company Number: US-ASTRAZENECA-2021A620319

PATIENT
  Sex: Female

DRUGS (1)
  1. LYNPARZA [Suspect]
     Active Substance: OLAPARIB
     Indication: PANCREATIC CARCINOMA
     Route: 048
     Dates: end: 20210705

REACTIONS (5)
  - Feeling of despair [Unknown]
  - Dehydration [Unknown]
  - Feeling abnormal [Unknown]
  - Disturbance in attention [Unknown]
  - Asthenia [Unknown]
